FAERS Safety Report 25928198 (Version 1)
Quarter: 2025Q4

REPORT INFORMATION
  Report Type: Spontaneous
  Country: GB (occurrence: None)
  Receive Date: 20251016
  Receipt Date: 20251016
  Transmission Date: 20260118
  Serious: Yes (Other)
  Sender: DEXCEL LTD.
  Company Number: None

PATIENT
  Age: 75 Year
  Sex: Male
  Weight: 78 kg

DRUGS (5)
  1. ACETIC ACID\DEXAMETHASONE\NEOMYCIN SULFATE [Suspect]
     Active Substance: ACETIC ACID\DEXAMETHASONE\NEOMYCIN SULFATE
     Indication: Sudden hearing loss
     Dosage: ...SPRAY ...
     Dates: start: 20251001, end: 20251009
  2. Canestan dropsCANESTEN (Specific MP Group PGR5418719) [Concomitant]
  3. AntibioticsANTIBIOTICS [Concomitant]
  4. ACETIC ACID\DEXAMETHASONE\NEOMYCIN SULFATE [Suspect]
     Active Substance: ACETIC ACID\DEXAMETHASONE\NEOMYCIN SULFATE
     Indication: Sudden hearing loss
     Dosage: ...SPRAY...
     Dates: start: 20251001, end: 20251009
  5. ACETIC ACID\DEXAMETHASONE\NEOMYCIN SULFATE [Suspect]
     Active Substance: ACETIC ACID\DEXAMETHASONE\NEOMYCIN SULFATE
     Indication: Sudden hearing loss
     Dosage: ...SPRAY...
     Dates: start: 20251001, end: 20251009

REACTIONS (1)
  - Deafness unilateral [Not Recovered/Not Resolved]

NARRATIVE: CASE EVENT DATE: 20251008
